FAERS Safety Report 20547687 (Version 1)
Quarter: 2022Q1

REPORT INFORMATION
  Report Type: Spontaneous
  Country: US (occurrence: None)
  Receive Date: 20220303
  Receipt Date: 20220303
  Transmission Date: 20220423
  Serious: Yes (Hospitalization)
  Sender: FDA-Public Use
  Company Number: None

PATIENT
  Sex: Male
  Weight: 86.18 kg

DRUGS (18)
  1. TEMOZOLOMIDE [Suspect]
     Active Substance: TEMOZOLOMIDE
     Indication: Brain neoplasm malignant
     Dosage: FREQUENCY : DAILY;?
     Route: 048
  2. Temozolomlde [Concomitant]
  3. DOCUSATE SODIUM [Concomitant]
     Active Substance: DOCUSATE SODIUM
  4. Polye1hylene Glycol [Concomitant]
  5. Pravachol Oral [Concomitant]
  6. Dulera Inhalation [Concomitant]
  7. POTASSIUM BICARBONATE [Concomitant]
     Active Substance: POTASSIUM BICARBONATE
  8. KEPPRA [Concomitant]
     Active Substance: LEVETIRACETAM
  9. CEPHALEXIN [Concomitant]
     Active Substance: CEPHALEXIN
  10. Vashe Wound Therapy External Soluti [Concomitant]
  11. LISINOPRIL [Concomitant]
     Active Substance: LISINOPRIL
  12. DILTIAZEM [Concomitant]
     Active Substance: DILTIAZEM
  13. FUROSEMIDE [Concomitant]
     Active Substance: FUROSEMIDE
  14. Metlonnin [Concomitant]
  15. METOPROLOL SUCCINATE [Concomitant]
     Active Substance: METOPROLOL SUCCINATE
  16. XARELTO [Concomitant]
     Active Substance: RIVAROXABAN
  17. ACYCLOVIR [Concomitant]
     Active Substance: ACYCLOVIR
  18. ZOFRAN [Concomitant]
     Active Substance: ONDANSETRON HYDROCHLORIDE

REACTIONS (1)
  - Hospitalisation [None]
